FAERS Safety Report 7739368-7 (Version None)
Quarter: 2011Q3

REPORT INFORMATION
  Report Type: 
  Country: None (occurrence: None)
  Receive Date: 20110909
  Receipt Date: 20110831
  Transmission Date: 20111222
  Serious: Yes (Life-Threatening, Hospitalization)
  Sender: FDA-Public Use
  Company Number: GB-RANBAXY-2011R1-47390

PATIENT
  Age: 59 Year
  Sex: Female
  Weight: 58.5 kg

DRUGS (7)
  1. CLOTRIMAZOLE [Concomitant]
     Indication: FUNGAL INFECTION
     Dosage: UNK
     Route: 061
     Dates: start: 20110601
  2. NICOTINE [Concomitant]
     Indication: PRODUCT USED FOR UNKNOWN INDICATION
     Dosage: 15 MG, 1 DAYS
     Route: 061
     Dates: start: 20110701
  3. ALBUTEROL [Concomitant]
     Indication: PRODUCT USED FOR UNKNOWN INDICATION
     Dosage: 100 UG, BID
     Route: 055
     Dates: start: 20110701
  4. CLOZAPINE [Suspect]
     Indication: PRODUCT USED FOR UNKNOWN INDICATION
     Dosage: UNK
     Route: 048
     Dates: start: 20110707, end: 20110809
  5. SYMBICORT [Concomitant]
     Indication: PRODUCT USED FOR UNKNOWN INDICATION
     Dosage: UNK
     Route: 055
     Dates: start: 20110701
  6. RANITIDINE [Suspect]
     Indication: DYSPEPSIA
     Dosage: 300 MG, 1 DAYS
     Route: 048
     Dates: start: 20110201
  7. CLOZAPINE [Suspect]
     Dosage: UNK
     Route: 048
     Dates: start: 20110610, end: 20110627

REACTIONS (3)
  - LEUKOPENIA [None]
  - AGRANULOCYTOSIS [None]
  - NEUTROPENIC SEPSIS [None]
